FAERS Safety Report 20762475 (Version 1)
Quarter: 2022Q2

REPORT INFORMATION
  Report Type: Spontaneous
  Country: JP (occurrence: None)
  Receive Date: 20220428
  Receipt Date: 20220428
  Transmission Date: 20220720
  Serious: Yes (Other)
  Sender: FDA-Public Use
  Company Number: JP-Orion Corporation ORION PHARMA-ENTC2022-0074

PATIENT
  Sex: Male

DRUGS (3)
  1. STALEVO [Suspect]
     Active Substance: CARBIDOPA\ENTACAPONE\LEVODOPA
     Indication: Parkinson^s disease
     Dosage: LEVODOPA100MG-CARBIDOPA10.8MG-ENTACAPONE100MG
     Route: 048
     Dates: start: 2018
  2. ISTRADEFYLLINE [Concomitant]
     Active Substance: ISTRADEFYLLINE
     Route: 065
  3. ROTIGOTINE [Concomitant]
     Active Substance: ROTIGOTINE
     Route: 065

REACTIONS (1)
  - Parkinson^s disease [Unknown]
